FAERS Safety Report 8829947 (Version 1)
Quarter: 2012Q4

REPORT INFORMATION
  Report Type: 
  Country: DE (occurrence: DE)
  Receive Date: 20121008
  Receipt Date: 20121008
  Transmission Date: 20130627
  Serious: Yes (Other)
  Sender: FDA-Public Use
  Company Number: DE-TEVA-361129GER

PATIENT
  Age: 37 Year
  Sex: Female

DRUGS (12)
  1. VENLAFAXINE [Suspect]
     Indication: DEPRESSION
     Dosage: 350 Milligram Daily; 350 [mg/d ]/ GW 27 started with 75 mg/d, dosage increased; GW 22-35 350 mg/d
     Route: 048
  2. VENLAFAXINE [Suspect]
     Dosage: 75 Milligram Daily; 350 [mg/d ]/ GW 27 started with 75 mg/d, dosage increased; GW 22-35 350 mg/d
     Route: 048
  3. OLANZAPINE [Suspect]
     Indication: OBSESSIVE-COMPULSIVE DISORDER
     Dosage: 2.5 Milligram Daily;
     Route: 048
  4. QUILONUM RETARD [Suspect]
     Indication: OBSESSIVE-COMPULSIVE DISORDER
     Route: 048
  5. QUILONUM RETARD [Suspect]
     Route: 048
  6. QUILONUM RETARD [Suspect]
     Route: 048
  7. QUILONUM RETARD [Suspect]
     Route: 048
  8. SERTRALIN [Concomitant]
     Indication: DEPRESSION
     Dosage: 150 Milligram Daily; 150 [mg/d ]/ GW 18-20: 50 mg/d; GW 21-24: 100 mg/d; GW 25-27. 150 mg/d
     Route: 048
  9. SERTRALIN [Concomitant]
     Dosage: 50 Milligram Daily; 150 [mg/d ]/ GW 18-20: 50 mg/d; GW 21-24: 100 mg/d; GW 25-27. 150 mg/d
     Route: 048
  10. SERTRALIN [Concomitant]
     Dosage: 100 Milligram Daily; 150 [mg/d ]/ GW 18-20: 50 mg/d; GW 21-24: 100 mg/d; GW 25-27. 150 mg/d
     Route: 048
  11. SERTRALIN [Concomitant]
     Dosage: 100 Milligram Daily; 150 [mg/d ]/ GW 18-20: 50 mg/d; GW 21-24: 100 mg/d; GW 25-27. 150 mg/d
     Route: 048
  12. FOLS?URE [Concomitant]
     Indication: PROPHYLAXIS OF NEURAL TUBE DEFECT
     Route: 048

REACTIONS (2)
  - Foetal death [Recovered/Resolved]
  - Placental disorder [None]
